FAERS Safety Report 9999067 (Version 1)
Quarter: 2014Q1

REPORT INFORMATION
  Report Type: Spontaneous
  Country: FR (occurrence: FR)
  Receive Date: 20140312
  Receipt Date: 20140312
  Transmission Date: 20141002
  Serious: Yes (Hospitalization, Other)
  Sender: FDA-Public Use
  Company Number: 2014SP001389

PATIENT
  Age: 68 Year
  Sex: Male

DRUGS (15)
  1. FLUOROURACIL [Suspect]
     Indication: SQUAMOUS CELL CARCINOMA OF THE ORAL CAVITY
     Route: 042
     Dates: start: 20140107
  2. CARBOPLATIN [Suspect]
     Indication: SQUAMOUS CELL CARCINOMA OF THE ORAL CAVITY
     Route: 042
     Dates: start: 20140107
  3. ERBITUX [Suspect]
     Route: 042
     Dates: start: 20140107
  4. LOVENOX [Suspect]
     Route: 058
     Dates: start: 20140116, end: 20140118
  5. LOVENOX [Suspect]
     Dates: start: 20140121
  6. VALPROATE SODIUM [Concomitant]
  7. ESOMEPRAZOLE MAGNESIUM [Concomitant]
  8. KARDEGIC [Concomitant]
  9. DUROGESIC [Concomitant]
  10. MIDAZOLAM PANPHARMA [Concomitant]
  11. MORPHINE AGUETTANT [Concomitant]
  12. AMOXICILLIN TRIHYDRATE [Concomitant]
  13. CLAVULANATE POTASSIUM [Concomitant]
  14. PREDNISOLONE SODIUM SULFOBENZOATE [Concomitant]
  15. RIVOTRIL [Concomitant]

REACTIONS (4)
  - Agitation [Unknown]
  - Confusional state [Unknown]
  - Disorientation [Unknown]
  - Thrombocytopenia [Recovered/Resolved]
